FAERS Safety Report 25145831 (Version 1)
Quarter: 2025Q2

REPORT INFORMATION
  Report Type: Report from Study
  Country: US (occurrence: US)
  Receive Date: 20250401
  Receipt Date: 20250401
  Transmission Date: 20250717
  Serious: Yes (Other)
  Sender: ALEXION PHARMACEUTICALS
  Company Number: 202503USA022233US

PATIENT
  Age: 75 Year

DRUGS (1)
  1. STRENSIQ [Suspect]
     Active Substance: ASFOTASE ALFA
     Indication: Phosphorus metabolism disorder
     Dosage: 50 MILLIGRAM, SIX TIMES/WEEK
     Route: 065

REACTIONS (5)
  - Hemiparesis [Not Recovered/Not Resolved]
  - Dizziness [Not Recovered/Not Resolved]
  - Vestibular disorder [Not Recovered/Not Resolved]
  - Weight increased [Not Recovered/Not Resolved]
  - Head discomfort [Not Recovered/Not Resolved]
